FAERS Safety Report 7376836-4 (Version None)
Quarter: 2011Q1

REPORT INFORMATION
  Report Type: 
  Country: None (occurrence: None)
  Receive Date: 20110325
  Receipt Date: 20110316
  Transmission Date: 20110831
  Serious: Yes (Hospitalization, Other)
  Sender: FDA-Public Use
  Company Number: US-MERCK-1010USA02560

PATIENT
  Age: 67 Year
  Sex: Female
  Weight: 77 kg

DRUGS (2)
  1. FOSAMAX [Suspect]
     Route: 048
     Dates: start: 19950101, end: 19990101
  2. FOSAMAX [Suspect]
     Indication: OSTEOPENIA
     Route: 048
     Dates: start: 19990101, end: 20070201

REACTIONS (59)
  - HEPATIC STEATOSIS [None]
  - COLONIC POLYP [None]
  - ORAL CANDIDIASIS [None]
  - ARTHRALGIA [None]
  - HAEMORRHOIDS [None]
  - HYPERURICAEMIA [None]
  - TACHYCARDIA [None]
  - PULMONARY CALCIFICATION [None]
  - PNEUMONIA [None]
  - OSTEOARTHRITIS [None]
  - GOUTY ARTHRITIS [None]
  - C-TELOPEPTIDE INCREASED [None]
  - FLANK PAIN [None]
  - ROTATOR CUFF SYNDROME [None]
  - ADVERSE DRUG REACTION [None]
  - ANXIETY [None]
  - SPINAL COLUMN STENOSIS [None]
  - RETINAL HAEMORRHAGE [None]
  - HEADACHE [None]
  - UTERINE LEIOMYOMA [None]
  - NECK PAIN [None]
  - OSTEOMYELITIS [None]
  - DIABETIC RETINOPATHY [None]
  - CHRONIC OBSTRUCTIVE PULMONARY DISEASE [None]
  - SCIATICA [None]
  - GALLBLADDER POLYP [None]
  - AZOTAEMIA [None]
  - HYPERTENSION [None]
  - CARDIAC FAILURE CONGESTIVE [None]
  - BLISTER [None]
  - HYPERTENSIVE HEART DISEASE [None]
  - FUNGAL INFECTION [None]
  - BUNDLE BRANCH BLOCK LEFT [None]
  - ABDOMINAL PAIN UPPER [None]
  - MITRAL VALVE INCOMPETENCE [None]
  - TOOTH FRACTURE [None]
  - SYNOVIAL CYST [None]
  - ORAL INFECTION [None]
  - HYPERCHOLESTEROLAEMIA [None]
  - OSTEONECROSIS OF JAW [None]
  - AORTIC VALVE SCLEROSIS [None]
  - SPINAL OSTEOARTHRITIS [None]
  - DIVERTICULUM [None]
  - CHOLELITHIASIS [None]
  - MACULAR DEGENERATION [None]
  - LUMBAR RADICULOPATHY [None]
  - RENAL IMPAIRMENT [None]
  - CATARACT [None]
  - ANAEMIA [None]
  - SPONDYLOLISTHESIS [None]
  - JOINT EFFUSION [None]
  - DIABETES MELLITUS [None]
  - STOMATITIS [None]
  - SKIN CANCER [None]
  - INTERVERTEBRAL DISC PROTRUSION [None]
  - DEPRESSION [None]
  - ARTHROPATHY [None]
  - UTERINE DISORDER [None]
  - OSTEOPOROSIS [None]
